FAERS Safety Report 6485136-6 (Version None)
Quarter: 2009Q4

REPORT INFORMATION
  Report Type: 
  Country: None (occurrence: None)
  Receive Date: 20091204
  Receipt Date: 20091120
  Transmission Date: 20100525
  Serious: Yes (Hospitalization, Other)
  Sender: FDA-Public Use
  Company Number: 2009SP035816

PATIENT
  Age: 54 Year
  Sex: Male
  Weight: 92 kg

DRUGS (6)
  1. ORGARAN [Suspect]
     Indication: ATRIAL FIBRILLATION
     Dosage: 250 IU;QH; IV
     Route: 042
     Dates: start: 20090930, end: 20091107
  2. ORGARAN [Suspect]
     Indication: HEPARIN-INDUCED THROMBOCYTOPENIA
     Dosage: 250 IU;QH; IV
     Route: 042
     Dates: start: 20090930, end: 20091107
  3. DOBUTAMINE HCL [Concomitant]
  4. LASILIX [Concomitant]
  5. DIGOXIN [Concomitant]
  6. ALDACTONE [Concomitant]

REACTIONS (5)
  - DECUBITUS ULCER [None]
  - DERMATITIS BULLOUS [None]
  - SKIN NECROSIS [None]
  - STEVENS-JOHNSON SYNDROME [None]
  - TOXIC SKIN ERUPTION [None]
